FAERS Safety Report 7098563-3 (Version None)
Quarter: 2010Q4

REPORT INFORMATION
  Report Type: 
  Country: None (occurrence: None)
  Receive Date: 20101112
  Receipt Date: 20101101
  Transmission Date: 20110411
  Serious: Yes (Other)
  Sender: FDA-Public Use
  Company Number: AU-JNJFOC-20100906819

PATIENT
  Age: 28 Year
  Sex: Female

DRUGS (3)
  1. REMICADE [Suspect]
     Indication: CROHN'S DISEASE
     Dosage: 1ST INDUCTION DOSE
     Route: 042
  2. REMICADE [Suspect]
     Dosage: 3RD INDUCTION DOSE
     Route: 042
  3. REMICADE [Suspect]
     Dosage: 2ND INDUCTION DOSE
     Route: 042

REACTIONS (2)
  - CAESAREAN SECTION [None]
  - DRUG EXPOSURE DURING PREGNANCY [None]
